FAERS Safety Report 24258111 (Version 1)
Quarter: 2024Q3

REPORT INFORMATION
  Report Type: Spontaneous
  Country: DE (occurrence: DE)
  Receive Date: 20240828
  Receipt Date: 20240828
  Transmission Date: 20241017
  Serious: Yes (Hospitalization)
  Sender: NOVARTIS
  Company Number: DE-PFIZER INC-202200193545

PATIENT
  Age: 80 Year
  Sex: Female
  Weight: 60 kg

DRUGS (3)
  1. LETROZOLE [Suspect]
     Active Substance: LETROZOLE
     Indication: Breast cancer
     Dosage: 2.5 MG, QD (2.5 MG, DAILY)
     Route: 048
     Dates: start: 20210622, end: 20230719
  2. PALBOCICLIB [Suspect]
     Active Substance: PALBOCICLIB
     Indication: Breast cancer
     Dosage: 125 MG, CYCLIC (125 MG, DAILY FROM DAY 1 TO DAY 21 EVERY 28 DAY CYCLE)
     Route: 048
     Dates: start: 20210622, end: 20230712
  3. XGEVA [Concomitant]
     Active Substance: DENOSUMAB
     Indication: Prophylaxis
     Dosage: UNK
     Route: 058
     Dates: start: 20210621

REACTIONS (2)
  - Blood creatinine increased [Recovering/Resolving]
  - Diarrhoea [Recovered/Resolved]

NARRATIVE: CASE EVENT DATE: 20220129
